FAERS Safety Report 22115550 (Version 1)
Quarter: 2023Q1

REPORT INFORMATION
  Report Type: Other
  Country: None (occurrence: TW)
  Receive Date: 20230320
  Receipt Date: 20230320
  Transmission Date: 20230417
  Serious: Yes (Hospitalization, Other)
  Sender: FDA-Public Use
  Company Number: TW-Spectra Medical Devices, LLC-2139277

PATIENT
  Age: 41 Year
  Sex: Female

DRUGS (2)
  1. SODIUM CHLORIDE [Suspect]
     Active Substance: SODIUM CHLORIDE
     Indication: Cooling therapy
     Route: 065
  2. UROKINASE [Suspect]
     Active Substance: UROKINASE
     Route: 065

REACTIONS (2)
  - Pulmonary congestion [Recovered/Resolved]
  - Pleural effusion [Recovered/Resolved]
